FAERS Safety Report 6590664-9 (Version None)
Quarter: 2010Q1

REPORT INFORMATION
  Report Type: 
  Country: None (occurrence: None)
  Receive Date: 20100219
  Receipt Date: 20100212
  Transmission Date: 20100710
  Serious: Yes (Congenital Anomaly)
  Sender: FDA-Public Use
  Company Number: B0581897A

PATIENT

DRUGS (5)
  1. KIVEXA [Suspect]
     Indication: HIV INFECTION
     Dates: start: 20070101, end: 20070901
  2. COMBIVIR [Suspect]
     Indication: HIV INFECTION
     Dates: start: 20070920
  3. KALETRA [Suspect]
     Indication: HIV INFECTION
     Dates: start: 20070920
  4. EFAVIRENZ [Suspect]
     Indication: HIV INFECTION
     Dosage: 600MG PER DAY
     Dates: start: 20021001, end: 20070816
  5. VIRAMUNE [Suspect]
     Indication: HIV INFECTION
     Dosage: 200MG PER DAY
     Dates: start: 20070801, end: 20070905

REACTIONS (7)
  - CARDIAC MALPOSITION [None]
  - DEFORMITY THORAX [None]
  - DIAPHRAGMATIC APLASIA [None]
  - EXOMPHALOS [None]
  - HEAD CIRCUMFERENCE ABNORMAL [None]
  - HEPATIC DISPLACEMENT [None]
  - MICROCEPHALY [None]
